FAERS Safety Report 8930312 (Version 1)
Quarter: 2012Q4

REPORT INFORMATION
  Report Type: 
  Country: US (occurrence: US)
  Receive Date: 20121121
  Receipt Date: 20121121
  Transmission Date: 20130627
  Serious: Yes (Death)
  Sender: FDA-Public Use
  Company Number: US-ASTELLAS-1091186

PATIENT
  Sex: Female

DRUGS (16)
  1. TARCEVA [Suspect]
     Indication: LUNG NEOPLASM MALIGNANT
     Dates: start: 200910
  2. OXYGEN [Concomitant]
  3. DURAGESIC [Concomitant]
  4. VICODIN [Concomitant]
     Indication: PAIN
  5. OMEPRAZOLE [Concomitant]
  6. COLACE [Concomitant]
  7. ZOFRAN [Concomitant]
     Indication: NAUSEA
  8. PHENERGAN [Concomitant]
     Indication: NAUSEA
  9. ASPIRIN [Concomitant]
  10. LIPITOR [Concomitant]
  11. TRAVATAN [Concomitant]
  12. SYMBICORT [Concomitant]
  13. SPIRIVA [Concomitant]
  14. ALBUTEROL [Concomitant]
  15. PANTOPRAZOLE [Concomitant]
  16. ATIVAN [Concomitant]

REACTIONS (1)
  - Death [Fatal]
